FAERS Safety Report 17115701 (Version 1)
Quarter: 2019Q4

REPORT INFORMATION
  Report Type: Spontaneous
  Country: US (occurrence: US)
  Receive Date: 20191204
  Receipt Date: 20191204
  Transmission Date: 20200122
  Serious: Yes (Other)
  Sender: FDA-Public Use
  Company Number: None

PATIENT
  Sex: Female

DRUGS (1)
  1. CLINDAMYCIN 1% TOPICAL GEL [Suspect]
     Active Substance: CLINDAMYCIN

REACTIONS (2)
  - Skin exfoliation [None]
  - Dry skin [None]
